FAERS Safety Report 6646841-1 (Version None)
Quarter: 2010Q1

REPORT INFORMATION
  Report Type: 
  Country: None (occurrence: None)
  Receive Date: 20100309
  Receipt Date: 20100108
  Transmission Date: 20100710
  Serious: No
  Sender: FDA-Public Use
  Company Number: 2010SP002143

PATIENT
  Age: 49 Year
  Sex: Female

DRUGS (22)
  1. SAPHRIS [Suspect]
     Indication: DRUG USE FOR UNKNOWN INDICATION
     Dosage: 5 MG; BID; SEE IMAGE
     Dates: start: 20091022, end: 20091026
  2. SAPHRIS [Suspect]
     Indication: DRUG USE FOR UNKNOWN INDICATION
     Dosage: 5 MG; BID; SEE IMAGE
     Dates: start: 20091027, end: 20091030
  3. ALLEGRA D 24 HOUR [Concomitant]
  4. ADVAIR DISKUS 100/50 [Concomitant]
  5. GEODON [Concomitant]
  6. SIMVASTATIN [Concomitant]
  7. METOPROLOL TARTRATE [Concomitant]
  8. MIRALAX [Concomitant]
  9. POTASSIUM CHLORIDE [Concomitant]
  10. REQUIP [Concomitant]
  11. GABAPENTIN [Concomitant]
  12. LEVOTHYROXINE SODIUM [Concomitant]
  13. DOCUSATE [Concomitant]
  14. LAMOTRIGINE [Concomitant]
  15. DULOXETINE HYDROCHLORIDE [Concomitant]
  16. DICLOFENAC SODIUM [Concomitant]
  17. BENZTROPINE MESYLATE [Concomitant]
  18. BUPROPION HCL [Concomitant]
  19. DICYCLOMINE [Concomitant]
  20. INSULIN [Concomitant]
  21. SEROQUEL [Concomitant]
  22. PRISTIQ [Concomitant]

REACTIONS (1)
  - HYPOAESTHESIA ORAL [None]
